FAERS Safety Report 19228566 (Version 1)
Quarter: 2021Q2

REPORT INFORMATION
  Report Type: Spontaneous
  Country: JP (occurrence: JP)
  Receive Date: 20210507
  Receipt Date: 20210507
  Transmission Date: 20210717
  Serious: Yes (Other)
  Sender: FDA-Public Use
  Company Number: JP-CHEPLA-C20212214

PATIENT
  Age: 55 Year
  Sex: Male

DRUGS (9)
  1. GANCICLOVIR. [Suspect]
     Active Substance: GANCICLOVIR
     Indication: CYTOMEGALOVIRUS TEST POSITIVE
     Dosage: UNK, FROM DAY 49
  2. CYCLOPHOSPHAMIDE. [Concomitant]
     Active Substance: CYCLOPHOSPHAMIDE
     Dosage: 500 MG,(300 MG/MM2 ), EVERY TWO WEEKS, WAS STARTED ON DAY 2
  3. METHYLPREDNISOLONE. [Concomitant]
     Active Substance: METHYLPREDNISOLONE
     Dosage: 1000 MG, DAILY
  4. VORICONAZOLE. [Concomitant]
     Active Substance: VORICONAZOLE
     Indication: PROPHYLAXIS
  5. TACROLIMUS. [Concomitant]
     Active Substance: TACROLIMUS
  6. IMMUNOGLOBULIN NOS [Concomitant]
     Active Substance: IMMUNE GLOBULIN NOS
     Dosage: .4 G/KG, DAILY
  7. TOFACITINIB [Suspect]
     Active Substance: TOFACITINIB
     Dosage: 5 MG, BID, (ON DAYS 38)
  8. PENTAMIDINE [Concomitant]
     Active Substance: PENTAMIDINE
     Dosage: 300 MG ONCE A WEEK
  9. ACYCLOVIR. [Concomitant]
     Active Substance: ACYCLOVIR
     Indication: PROPHYLAXIS

REACTIONS (4)
  - Pneumomediastinum [Recovered/Resolved]
  - KL-6 increased [Recovering/Resolving]
  - Skin ulcer [Recovered/Resolved]
  - Furuncle [Recovered/Resolved]
